FAERS Safety Report 4661883-3 (Version None)
Quarter: 2005Q2

REPORT INFORMATION
  Report Type: 
  Country: None (occurrence: None)
  Receive Date: 20050513
  Receipt Date: 20050503
  Transmission Date: 20051028
  Serious: Yes (Hospitalization)
  Sender: FDA-Public Use
  Company Number: US-MERCK-0505USA00469

PATIENT
  Age: 44 Year
  Sex: Male

DRUGS (2)
  1. ZOCOR [Suspect]
     Indication: BLOOD CHOLESTEROL INCREASED
     Route: 048
     Dates: start: 20050427, end: 20050428
  2. [THERAPY UNSPECIFIED] [Concomitant]
     Route: 065

REACTIONS (3)
  - ADVERSE EVENT [None]
  - BLOOD CREATINE PHOSPHOKINASE INCREASED [None]
  - PAIN IN EXTREMITY [None]
